FAERS Safety Report 7361706-8 (Version None)
Quarter: 2011Q1

REPORT INFORMATION
  Report Type: 
  Country: None (occurrence: None)
  Receive Date: 20110318
  Receipt Date: 20100618
  Transmission Date: 20110831
  Serious: No
  Sender: FDA-Public Use
  Company Number: US-PFIZER INC-2010077332

PATIENT
  Sex: Male

DRUGS (8)
  1. CRESTOR [Concomitant]
     Indication: BLOOD CHOLESTEROL INCREASED
     Dosage: UNK
  2. UNASYN [Suspect]
     Indication: OSTEOMYELITIS
     Dosage: 3 G, 4X/DAY (REPORTED AS EVERY SIX HOURS INTRAVENOUS INJECTION)
     Route: 042
     Dates: start: 20100513
  3. LISINOPRIL [Concomitant]
     Indication: HYPERTENSION
     Dosage: UNK
  4. ACTOS [Concomitant]
     Dosage: UNK
  5. HUMALOG [Concomitant]
     Indication: DIABETES MELLITUS
     Dosage: UNK
  6. HYDROCHLOROTHIAZIDE [Concomitant]
     Indication: HYPERTENSION
     Dosage: UNK
  7. VERAPAMIL [Concomitant]
     Indication: HYPERTENSION
     Dosage: UNK
  8. INSULIN DETEMIR [Concomitant]
     Dosage: UNK

REACTIONS (1)
  - TINNITUS [None]
